FAERS Safety Report 15011999 (Version 1)
Quarter: 2018Q2

REPORT INFORMATION
  Report Type: Spontaneous
  Country: US (occurrence: US)
  Receive Date: 20180614
  Receipt Date: 20180614
  Transmission Date: 20180711
  Serious: No
  Sender: FDA-Public Use
  Company Number: US-JNJFOC-20180542419

PATIENT
  Sex: Female
  Weight: 86.64 kg

DRUGS (4)
  1. CLARITIN [Concomitant]
     Active Substance: LORATADINE
     Route: 065
  2. DETROL [Concomitant]
     Active Substance: TOLTERODINE TARTRATE
     Route: 065
  3. TOPAMAX [Concomitant]
     Active Substance: TOPIRAMATE
     Route: 065
  4. STELARA [Suspect]
     Active Substance: USTEKINUMAB
     Indication: PSORIASIS
     Dosage: AT WEEK 4 THEN EVERY 12 WEEKS ????NDC; 5789406003
     Route: 058
     Dates: start: 2018

REACTIONS (3)
  - Skin exfoliation [Recovering/Resolving]
  - Psoriasis [Recovering/Resolving]
  - Pain [Unknown]

NARRATIVE: CASE EVENT DATE: 2018
